FAERS Safety Report 7147329-4 (Version None)
Quarter: 2010Q4

REPORT INFORMATION
  Report Type: 
  Country: None (occurrence: None)
  Receive Date: 20101209
  Receipt Date: 20100329
  Transmission Date: 20110411
  Serious: Yes (Death, Hospitalization)
  Sender: FDA-Public Use
  Company Number: US-ACTELION-A-US2007-18374

PATIENT

DRUGS (3)
  1. BOSENTAN TABLET 125 MG US [Suspect]
     Indication: PULMONARY HYPERTENSION
     Dosage: 125 MG, BID
     Route: 048
     Dates: start: 20051221
  2. ANTIBIOTICS [Concomitant]
  3. PREDNISONE [Concomitant]

REACTIONS (15)
  - ABNORMAL SENSATION IN EYE [None]
  - ALOPECIA [None]
  - CHEST DISCOMFORT [None]
  - DEATH [None]
  - DYSPNOEA [None]
  - EYE PAIN [None]
  - FATIGUE [None]
  - INFECTION [None]
  - MUSCLE SPASMS [None]
  - NASOPHARYNGITIS [None]
  - OCULAR HYPERAEMIA [None]
  - PALPITATIONS [None]
  - PHOTOPHOBIA [None]
  - RASH PRURITIC [None]
  - SKIN DISCOLOURATION [None]
